FAERS Safety Report 7551670-0 (Version None)
Quarter: 2011Q2

REPORT INFORMATION
  Report Type: 
  Country: None (occurrence: None)
  Receive Date: 20110609
  Receipt Date: 20110524
  Transmission Date: 20111010
  Serious: Yes (Other)
  Sender: FDA-Public Use
  Company Number: 2011MA006377

PATIENT
  Age: 66 Year
  Sex: Male

DRUGS (3)
  1. ESCITALOPRAM [Concomitant]
  2. FENTANYL [Concomitant]
  3. OXYCODONE HCL [Suspect]
     Indication: PAIN
     Dosage: 120 MG, OD;

REACTIONS (7)
  - DIARRHOEA [None]
  - TREMOR [None]
  - MYDRIASIS [None]
  - WEIGHT DECREASED [None]
  - HYPERHIDROSIS [None]
  - VISION BLURRED [None]
  - VISUAL IMPAIRMENT [None]
